FAERS Safety Report 15574009 (Version 1)
Quarter: 2018Q4

REPORT INFORMATION
  Report Type: Spontaneous
  Country: US (occurrence: US)
  Receive Date: 20181026
  Receipt Date: 20181026
  Transmission Date: 20190205
  Serious: Yes (Hospitalization)
  Sender: FDA-Public Use
  Company Number: None

PATIENT
  Age: 76 Year
  Sex: Male
  Weight: 89.36 kg

DRUGS (1)
  1. GAMMAGARD [Suspect]
     Active Substance: HUMAN IMMUNOGLOBULIN G
     Indication: IMMUNODEFICIENCY COMMON VARIABLE
     Route: 058
     Dates: start: 20181019, end: 20181019

REACTIONS (13)
  - Pyrexia [None]
  - Tremor [None]
  - Dyspnoea [None]
  - Musculoskeletal stiffness [None]
  - Vomiting [None]
  - Headache [None]
  - Nausea [None]
  - Photophobia [None]
  - Confusional state [None]
  - Chills [None]
  - Fatigue [None]
  - Rash [None]
  - Meningitis aseptic [None]

NARRATIVE: CASE EVENT DATE: 20181023
